FAERS Safety Report 10686584 (Version 2)
Quarter: 2015Q1

REPORT INFORMATION
  Report Type: Report from Study
  Country: DE (occurrence: DE)
  Receive Date: 20150101
  Receipt Date: 20150101
  Transmission Date: 20150720
  Serious: Yes (Hospitalization)
  Sender: FDA-Public Use
  Company Number: DE-BIOGENIDEC-2014BI110858

PATIENT
  Age: 45 Year
  Sex: Female
  Weight: 57 kg

DRUGS (4)
  1. VIANIMITHE (NOS) [Concomitant]
     Indication: ASTHMA
     Route: 055
     Dates: start: 20080101
  2. PROVAS [Concomitant]
     Active Substance: VALSARTAN
     Indication: HYPERTENSION
     Dates: start: 19940101
  3. NITRIPITHIN (NOS) FOR HYPERTENSION [Concomitant]
     Indication: HYPERTENSION
     Dates: start: 19940101
  4. TECFIDERA [Suspect]
     Active Substance: DIMETHYL FUMARATE
     Indication: MULTIPLE SCLEROSIS
     Route: 048
     Dates: start: 20140501

REACTIONS (3)
  - Multiple sclerosis relapse [Not Recovered/Not Resolved]
  - Flushing [Recovered/Resolved]
  - Rehabilitation therapy [Unknown]

NARRATIVE: CASE EVENT DATE: 20140501
